FAERS Safety Report 6782111-9 (Version None)
Quarter: 2010Q2

REPORT INFORMATION
  Report Type: 
  Country: None (occurrence: None)
  Receive Date: 20100621
  Receipt Date: 20100610
  Transmission Date: 20101027
  Serious: Yes (Other)
  Sender: FDA-Public Use
  Company Number: JP-MERCK-1006USA02204

PATIENT
  Age: 9 Year
  Sex: Female

DRUGS (3)
  1. PEPCID [Suspect]
     Route: 048
  2. AMITRIPTYLINE HCL [Suspect]
     Route: 048
  3. CHLORPROMAZINE HYDROCHLORIDE [Concomitant]
     Route: 065

REACTIONS (1)
  - THERAPEUTIC AGENT TOXICITY [None]
